FAERS Safety Report 6875539-X (Version None)
Quarter: 2010Q3

REPORT INFORMATION
  Report Type: 
  Country: None (occurrence: None)
  Receive Date: 20100727
  Receipt Date: 20100717
  Transmission Date: 20110219
  Serious: Yes (Hospitalization, Other)
  Sender: FDA-Public Use
  Company Number: FR-JNJFOC-20100705589

PATIENT
  Sex: Female

DRUGS (13)
  1. LEUSTAT [Suspect]
     Indication: LANGERHANS' CELL HISTIOCYTOSIS
     Dosage: 9MG/M^2/D CONTINUOUSLY FOR 5 CONSECUTIVE DAYS. A DOSE OF 0.3 MG/KG/D FOR BODY WEIGHT BELOW 10 KG
     Route: 042
  2. LEUSTAT [Suspect]
     Dosage: 9MG/M^2/D CONTINUOUSLY FOR 5 CONSECUTIVE DAYS. A DOSE OF 0.3 MG/KG/D FOR BODY WEIGHT BELOW 10 KG
     Route: 042
  3. LEUSTAT [Suspect]
     Dosage: 9MG/M^2/D CONTINUOUSLY FOR 5 CONSECUTIVE DAYS. A DOSE OF 0.3 MG/KG/D FOR BODY WEIGHT BELOW 10 KG
     Route: 042
  4. LEUSTAT [Suspect]
     Dosage: 9MG/M^2/D CONTINUOUSLY FOR 5 CONSECUTIVE DAYS. A DOSE OF 0.3 MG/KG/D FOR BODY WEIGHT BELOW 10 KG
     Route: 042
  5. CYTARABINE [Suspect]
     Indication: LANGERHANS' CELL HISTIOCYTOSIS
     Dosage: DOSE OF 1000 MG/M^2/D BY TWO 2 HOURS INTRAVENOUS INFUSION
     Route: 042
  6. CYTARABINE [Suspect]
     Dosage: DOSE OF 1000 MG/M^2/D BY TWO 2 HOURS INTRAVENOUS INFUSION
     Route: 042
  7. VINBLASTINE SULFATE [Suspect]
     Indication: LANGERHANS' CELL HISTIOCYTOSIS
     Route: 065
  8. VINBLASTINE SULFATE [Suspect]
     Dosage: 4 DOSES OF 6 MG/M^2/D
     Route: 065
  9. CORTICOSTEROID [Suspect]
     Indication: LANGERHANS' CELL HISTIOCYTOSIS
     Route: 065
  10. CORTICOSTEROID [Suspect]
     Route: 065
  11. ANTIEMETICS [Concomitant]
     Indication: VOMITING
     Route: 065
  12. SULFAMETHOXAZOLE AND TRIMETHOPRIM [Concomitant]
     Indication: ANTIFUNGAL PROPHYLAXIS
     Route: 065
  13. NEUPOGEN [Concomitant]
     Indication: PRODUCT USED FOR UNKNOWN INDICATION
     Route: 065

REACTIONS (4)
  - DRUG EFFECT DECREASED [None]
  - NEUTROPENIA [None]
  - PYREXIA [None]
  - STAPHYLOCOCCAL SEPSIS [None]
